FAERS Safety Report 6141646-2 (Version None)
Quarter: 2009Q2

REPORT INFORMATION
  Report Type: 
  Country: None (occurrence: None)
  Receive Date: 20090402
  Receipt Date: 20090331
  Transmission Date: 20091009
  Serious: Yes (Death, Hospitalization)
  Sender: FDA-Public Use
  Company Number: B0567813A

PATIENT
  Sex: Male

DRUGS (3)
  1. AMOXICILLIN AND CLAVULANATE POTASSIUM [Suspect]
     Route: 065
     Dates: start: 20081227, end: 20090108
  2. OFLOXACIN [Suspect]
     Dosage: 200MG PER DAY
     Route: 048
     Dates: start: 20090102, end: 20090112
  3. PREDNISOLONE [Suspect]
     Indication: DRUG USE FOR UNKNOWN INDICATION
     Dosage: 40MG PER DAY
     Route: 048
     Dates: start: 20081123, end: 20090119

REACTIONS (1)
  - CLOSTRIDIUM DIFFICILE COLITIS [None]
